FAERS Safety Report 10633844 (Version 1)
Quarter: 2014Q4

REPORT INFORMATION
  Report Type: Spontaneous
  Country: US (occurrence: US)
  Receive Date: 20141205
  Receipt Date: 20141205
  Transmission Date: 20150529
  Serious: No
  Sender: FDA-Public Use
  Company Number: US-ASTELLAS-2014US018574

PATIENT
  Sex: Male

DRUGS (1)
  1. XTANDI [Suspect]
     Active Substance: ENZALUTAMIDE
     Indication: PROSTATE CANCER
     Route: 048
     Dates: start: 20141107

REACTIONS (6)
  - Headache [Unknown]
  - General physical health deterioration [Unknown]
  - Back pain [Unknown]
  - Activities of daily living impaired [Unknown]
  - Constipation [Unknown]
  - Myalgia [Unknown]
